FAERS Safety Report 5709181-0 (Version None)
Quarter: 2008Q2

REPORT INFORMATION
  Report Type: 
  Country: None (occurrence: None)
  Receive Date: 20080418
  Receipt Date: 20080411
  Transmission Date: 20081010
  Serious: Yes (Other)
  Sender: FDA-Public Use
  Company Number: US-ASTRAZENECA-2008UW07516

PATIENT
  Age: 76 Year
  Sex: Female
  Weight: 70.3 kg

DRUGS (8)
  1. ARIMIDEX [Suspect]
     Indication: BREAST CANCER FEMALE
     Route: 048
     Dates: start: 20060201, end: 20070423
  2. FOSAMAX [Concomitant]
  3. ZOCOR [Concomitant]
  4. TENORMIN [Concomitant]
     Route: 048
  5. NIFEDICAL [Concomitant]
  6. PREDNISONE [Concomitant]
  7. IMODIUM [Concomitant]
  8. PRINIVIL [Concomitant]

REACTIONS (4)
  - BACK PAIN [None]
  - BREAST CALCIFICATIONS [None]
  - PAIN IN EXTREMITY [None]
  - PULMONARY THROMBOSIS [None]
